FAERS Safety Report 10401195 (Version 2)
Quarter: 2014Q3

REPORT INFORMATION
  Report Type: Report from Study
  Country: VE (occurrence: VE)
  Receive Date: 20140822
  Receipt Date: 20140822
  Transmission Date: 20150326
  Serious: Yes (Other)
  Sender: FDA-Public Use
  Company Number: VE-ABBVIE-14P-178-1241882-00

PATIENT
  Sex: Female
  Weight: 51 kg

DRUGS (9)
  1. ULGARIN [Concomitant]
     Indication: GASTRITIS
     Route: 048
     Dates: start: 2011
  2. EUTIROX [Concomitant]
     Active Substance: LEVOTHYROXINE SODIUM
     Indication: HYPOTHYROIDISM
     Route: 048
     Dates: start: 2009
  3. TILIUM [Concomitant]
     Indication: GASTRITIS
     Route: 048
     Dates: start: 2011
  4. GLUCOFAGE [Concomitant]
     Indication: HYPERINSULINISM
     Route: 048
     Dates: start: 201305
  5. XEFO [Concomitant]
     Active Substance: LORNOXICAM
     Indication: RHEUMATOID ARTHRITIS
     Route: 048
     Dates: start: 2012
  6. SIMPLA [Concomitant]
     Indication: OSTEOPOROSIS
     Route: 048
     Dates: start: 2014
  7. FLUDIL [Concomitant]
     Indication: MIGRAINE
     Dosage: EVEN JUL-2014
     Route: 048
     Dates: start: 201405
  8. HUMIRA [Suspect]
     Active Substance: ADALIMUMAB
     Indication: RHEUMATOID ARTHRITIS
     Route: 058
     Dates: start: 2012, end: 201401
  9. ACIDO IBANDRONICO [Concomitant]
     Indication: OSTEOPOROSIS
     Dates: start: 2014

REACTIONS (2)
  - Abdominal hernia [Not Recovered/Not Resolved]
  - Migraine [Recovering/Resolving]

NARRATIVE: CASE EVENT DATE: 2013
